FAERS Safety Report 6129964-5 (Version None)
Quarter: 2009Q1

REPORT INFORMATION
  Report Type: 
  Country: None (occurrence: None)
  Receive Date: 20090324
  Receipt Date: 20090319
  Transmission Date: 20090719
  Serious: Yes (Hospitalization, Other)
  Sender: FDA-Public Use
  Company Number: ES-BAYER-200910373GPV

PATIENT
  Age: 66 Year
  Sex: Female
  Weight: 79 kg

DRUGS (9)
  1. SORAFENIB [Suspect]
     Indication: NON-SMALL CELL LUNG CANCER
     Route: 048
     Dates: start: 20081223, end: 20081230
  2. GEMCITABINE [Suspect]
     Indication: NON-SMALL CELL LUNG CANCER
     Route: 042
     Dates: start: 20081223, end: 20081230
  3. CISPLATIN [Suspect]
     Indication: NON-SMALL CELL LUNG CANCER
     Route: 042
     Dates: start: 20081223, end: 20081230
  4. ORFIDAL [Concomitant]
     Indication: ANXIETY
     Route: 048
     Dates: start: 20081230
  5. PARACETAMOL [Concomitant]
     Indication: PAIN
     Route: 048
     Dates: start: 20081230, end: 20090126
  6. PANTOPRAZOLE SODIUM [Concomitant]
     Indication: PROPHYLAXIS
     Route: 048
     Dates: start: 20090114, end: 20090204
  7. DEXAMETHASONE [Concomitant]
     Indication: PROPHYLAXIS OF NAUSEA AND VOMITING
     Route: 048
     Dates: start: 20090120, end: 20090120
  8. GRANISETRON [Concomitant]
     Indication: PROPHYLAXIS OF NAUSEA AND VOMITING
     Route: 042
     Dates: start: 20090120, end: 20090120
  9. NOLOTIL [Concomitant]
     Indication: PAIN
     Route: 048
     Dates: start: 20090130

REACTIONS (2)
  - CEREBRAL HAEMORRHAGE [None]
  - VENOUS THROMBOSIS [None]
